FAERS Safety Report 9791570 (Version 1)
Quarter: 2014Q1

REPORT INFORMATION
  Report Type: Spontaneous
  Country: US (occurrence: US)
  Receive Date: 20140101
  Receipt Date: 20140101
  Transmission Date: 20141002
  Serious: Yes (Disabling, Other)
  Sender: FDA-Public Use
  Company Number: US-GE HEALTHCARE MEDICAL DIAGNOSTICS-OSCN-PR-1311S-0098

PATIENT
  Age: 34 Year
  Sex: Female
  Weight: 101.13 kg

DRUGS (11)
  1. OMNISCAN [Suspect]
     Indication: GALACTORRHOEA
     Route: 042
     Dates: start: 20040119
  2. GADOLINIUM (UNSPECIFIED) [Suspect]
     Indication: GALACTORRHOEA
     Dates: start: 20040119
  3. MAGNEVIST [Suspect]
     Indication: PRODUCT USED FOR UNKNOWN INDICATION
     Dates: start: 20060407, end: 20060407
  4. OPTIMARK [Suspect]
     Indication: GALACTORRHOEA
     Dates: start: 20040119
  5. LEVOTHYROXINE [Concomitant]
  6. PROZAC [Concomitant]
  7. RENAGEL [Concomitant]
  8. XANAX [Concomitant]
  9. PRINIVIL [Concomitant]
  10. COUMADIN [Concomitant]
  11. ERYTHROPOIETIN [Concomitant]

REACTIONS (1)
  - Nephrogenic systemic fibrosis [Not Recovered/Not Resolved]
